FAERS Safety Report 6443602-3 (Version None)
Quarter: 2009Q4

REPORT INFORMATION
  Report Type: 
  Country: None (occurrence: None)
  Receive Date: 20091117
  Receipt Date: 20091109
  Transmission Date: 20100525
  Serious: Yes (Other)
  Sender: FDA-Public Use
  Company Number: US-B.I. PHARMACEUTICALS,INC./RIDGEFIELD-2009-BP-09591BP

PATIENT

DRUGS (1)
  1. MIRAPEX [Suspect]
     Dates: start: 20060101, end: 20090601

REACTIONS (10)
  - ACTIVITIES OF DAILY LIVING IMPAIRED [None]
  - DIZZINESS [None]
  - HYPERTENSION [None]
  - JOINT SWELLING [None]
  - LIBIDO INCREASED [None]
  - LOSS OF CONSCIOUSNESS [None]
  - OEDEMA PERIPHERAL [None]
  - PATHOLOGICAL GAMBLING [None]
  - SOMNAMBULISM [None]
  - SYNCOPE [None]
